FAERS Safety Report 20967030 (Version 1)
Quarter: 2022Q2

REPORT INFORMATION
  Report Type: Spontaneous
  Country: US (occurrence: None)
  Receive Date: 20220615
  Receipt Date: 20220615
  Transmission Date: 20220721
  Serious: No
  Sender: FDA-Public Use
  Company Number: None

PATIENT
  Sex: Female

DRUGS (1)
  1. IBRANCE [Suspect]
     Active Substance: PALBOCICLIB
     Indication: Breast cancer
     Dosage: 125MG DAILY FOR 21 DAYS ORAL?
     Route: 048
     Dates: start: 20220521

REACTIONS (2)
  - Influenza like illness [None]
  - Nasopharyngitis [None]
